FAERS Safety Report 20368985 (Version 1)
Quarter: 2022Q1

REPORT INFORMATION
  Report Type: Spontaneous
  Country: US (occurrence: None)
  Receive Date: 20220121
  Receipt Date: 20220121
  Transmission Date: 20220423
  Serious: Yes (Death)
  Sender: FDA-Public Use
  Company Number: None

PATIENT
  Age: 72 Year
  Sex: Female

DRUGS (1)
  1. ENBREL [Suspect]
     Active Substance: ETANERCEPT
     Indication: Psoriatic arthropathy
     Dosage: OTHER QUANTITY : 25/0.5 MG/ML;?FREQUENCY : TWICE A WEEK;?
     Route: 058
     Dates: start: 20210626, end: 20211118

REACTIONS (1)
  - Death [None]

NARRATIVE: CASE EVENT DATE: 20211118
